FAERS Safety Report 11990577 (Version 2)
Quarter: 2016Q1

REPORT INFORMATION
  Report Type: Spontaneous
  Country: US (occurrence: US)
  Receive Date: 20160202
  Receipt Date: 20160208
  Transmission Date: 20160526
  Serious: No
  Sender: FDA-Public Use
  Company Number: US-BAYER-2016-019705

PATIENT
  Age: 26 Year
  Sex: Female

DRUGS (1)
  1. MIRENA [Suspect]
     Active Substance: LEVONORGESTREL
     Indication: CONTRACEPTION
     Dosage: 20 MCG/24HR, CONT
     Route: 015
     Dates: start: 20150115, end: 20160121

REACTIONS (7)
  - Back pain [None]
  - Fatigue [None]
  - Dizziness [None]
  - Alopecia [None]
  - Depression [None]
  - Acne [None]
  - Headache [None]

NARRATIVE: CASE EVENT DATE: 2015
